FAERS Safety Report 6295113-6 (Version None)
Quarter: 2009Q3

REPORT INFORMATION
  Report Type: 
  Country: None (occurrence: None)
  Receive Date: 20090731
  Receipt Date: 20090731
  Transmission Date: 20100115
  Serious: Yes (Hospitalization)
  Sender: FDA-Public Use
  Company Number: None

PATIENT
  Age: 64 Year
  Sex: Male
  Weight: 71.7 kg

DRUGS (1)
  1. AMPICILLIN [Suspect]
     Indication: ENDOCARDITIS
     Dosage: 2 GM OTHER IV
     Route: 042
     Dates: start: 20090512, end: 20090626

REACTIONS (6)
  - APALLIC SYNDROME [None]
  - BLOOD CREATININE INCREASED [None]
  - CHEST PAIN [None]
  - EMBOLIC STROKE [None]
  - NAUSEA [None]
  - PANCYTOPENIA [None]
